FAERS Safety Report 9350742 (Version 2)
Quarter: 2013Q3

REPORT INFORMATION
  Report Type: Spontaneous
  Country: GB (occurrence: GB)
  Receive Date: 20130617
  Receipt Date: 20130710
  Transmission Date: 20140515
  Serious: Yes (Other)
  Sender: FDA-Public Use
  Company Number: PHFR2013GB003432

PATIENT
  Sex: Male

DRUGS (4)
  1. CLOZARIL [Suspect]
     Indication: SCHIZOPHRENIA
     Dosage: 450 MG, DAILY
     Route: 048
     Dates: start: 20110118
  2. LISINOPRIL [Concomitant]
     Route: 048
  3. LANSOPRAZOLE [Concomitant]
     Route: 048
  4. AMLODIPINE [Concomitant]
     Route: 048

REACTIONS (4)
  - Asthma [Unknown]
  - Dyspnoea [Unknown]
  - Lymphadenopathy [Unknown]
  - Sedation [Unknown]
